FAERS Safety Report 5322406-9 (Version None)
Quarter: 2007Q2

REPORT INFORMATION
  Report Type: 
  Country: None (occurrence: None)
  Receive Date: 20070511
  Receipt Date: 20070503
  Transmission Date: 20071010
  Serious: Yes (Other)
  Sender: FDA-Public Use
  Company Number: US-AVENTIS-200713284US

PATIENT
  Age: 43 Year
  Sex: Male

DRUGS (1)
  1. PENLAC [Suspect]
     Dates: start: 20061101

REACTIONS (2)
  - CONDITION AGGRAVATED [None]
  - CONVULSION [None]
